FAERS Safety Report 4760296-3 (Version None)
Quarter: 2005Q3

REPORT INFORMATION
  Report Type: 
  Country: None (occurrence: None)
  Receive Date: 20050831
  Receipt Date: 20050824
  Transmission Date: 20060218
  Serious: Yes (Life-Threatening, Hospitalization, Other)
  Sender: FDA-Public Use
  Company Number: 2005-06-1324

PATIENT
  Age: 62 Year
  Sex: Male
  Weight: 58 kg

DRUGS (4)
  1. CLARITIN [Suspect]
     Indication: SEASONAL ALLERGY
     Dosage: 10 MG ORAL
     Route: 048
     Dates: start: 20050310, end: 20050411
  2. NU-LOTAN (LOSARTAN POTASSIUM) TABLETS [Suspect]
     Indication: HYPERTENSION
     Dosage: 50 MG ORAL
     Route: 048
     Dates: start: 20050310, end: 20050404
  3. OMEPRAL (OMEPRAZOLE) TABLETS [Concomitant]
  4. AMARYL [Concomitant]

REACTIONS (6)
  - ASPARTATE AMINOTRANSFERASE INCREASED [None]
  - CONTUSION [None]
  - HEPATIC FUNCTION ABNORMAL [None]
  - INFECTION [None]
  - JAUNDICE [None]
  - LIVER DISORDER [None]
